FAERS Safety Report 9501754 (Version 4)
Quarter: 2013Q4

REPORT INFORMATION
  Report Type: Report from Study
  Country: US (occurrence: US)
  Receive Date: 20130905
  Receipt Date: 20131029
  Transmission Date: 20140711
  Serious: Yes (Other)
  Sender: FDA-Public Use
  Company Number: US-ROCHE-1147494

PATIENT
  Age: 70 Year
  Sex: Male
  Weight: 102.15 kg

DRUGS (1)
  1. ERIVEDGE [Suspect]
     Indication: BASAL CELL CARCINOMA
     Route: 048
     Dates: start: 20120721, end: 20130822

REACTIONS (12)
  - Squamous cell carcinoma [Unknown]
  - Eye excision [Unknown]
  - Dysgeusia [Not Recovered/Not Resolved]
  - Fatigue [Not Recovered/Not Resolved]
  - Constipation [Recovered/Resolved]
  - Dysgeusia [Not Recovered/Not Resolved]
  - Arthralgia [Recovering/Resolving]
  - Muscle spasms [Recovering/Resolving]
  - Fatigue [Recovering/Resolving]
  - Alopecia [Recovered/Resolved]
  - Bacterial infection [Not Recovered/Not Resolved]
  - Myalgia [Recovered/Resolved]
